FAERS Safety Report 8269530-9 (Version None)
Quarter: 2012Q2

REPORT INFORMATION
  Report Type: 
  Country: None (occurrence: None)
  Receive Date: 20120409
  Receipt Date: 20120326
  Transmission Date: 20120825
  Serious: Yes (Death)
  Sender: FDA-Public Use
  Company Number: PT-BAXTER-2012BH004408

PATIENT
  Sex: Male

DRUGS (10)
  1. FOLIC ACID [Concomitant]
     Route: 065
  2. ALFACALCIDOL [Concomitant]
     Route: 065
  3. FUROSEMIDE [Concomitant]
     Route: 065
  4. FINASTERIDE [Concomitant]
     Route: 065
  5. METOLAZONE [Concomitant]
     Route: 065
  6. COMPLEX B                          /00653501/ [Concomitant]
     Route: 065
  7. PHYSIONEAL 40 GLUCOSE 1,36% P/V/ 13,6 MG/ML CLEAR-FLEX [Suspect]
     Route: 033
     Dates: start: 20080910, end: 20120214
  8. PHYSIONEAL 40 GLUCOSE 2,27% P/V/ 22,7 MG/ML CLEAR-FLEX [Suspect]
     Route: 033
     Dates: start: 20080910, end: 20120214
  9. EXTRANEAL [Suspect]
     Route: 033
     Dates: start: 20080910, end: 20120214
  10. ALLOPURINOL [Concomitant]
     Route: 065

REACTIONS (1)
  - ACUTE MYOCARDIAL INFARCTION [None]
